FAERS Safety Report 5861851-X (Version None)
Quarter: 2008Q3

REPORT INFORMATION
  Report Type: 
  Country: None (occurrence: None)
  Receive Date: 20080827
  Receipt Date: 20080716
  Transmission Date: 20090109
  Serious: No
  Sender: FDA-Public Use
  Company Number: US-ABBOTT-08P-163-0462879-00

PATIENT
  Sex: Male
  Weight: 81.72 kg

DRUGS (3)
  1. COATED PDS [Suspect]
     Indication: HIGH DENSITY LIPOPROTEIN DECREASED
     Route: 048
     Dates: start: 20080715
  2. DUTASTERIDE [Concomitant]
     Indication: PROSTATIC DISORDER
  3. TELMISARTAN [Concomitant]
     Indication: BLOOD PRESSURE

REACTIONS (1)
  - PRURITUS [None]
